FAERS Safety Report 6520935-3 (Version None)
Quarter: 2009Q4

REPORT INFORMATION
  Report Type: 
  Country: None (occurrence: None)
  Receive Date: 20091229
  Receipt Date: 20091216
  Transmission Date: 20100525
  Serious: Yes (Other)
  Sender: FDA-Public Use
  Company Number: PL-AMGEN-US381626

PATIENT
  Age: 11 Year
  Sex: Female
  Weight: 51 kg

DRUGS (3)
  1. ENBREL [Suspect]
     Indication: JUVENILE ARTHRITIS
     Dosage: 40 MG AT AN UNSPECIFIED FREQUENCY
     Route: 058
  2. ELOCON [Concomitant]
     Dosage: UNKNOWN
     Route: 065
  3. CLARITIN [Concomitant]
     Indication: ANTIALLERGIC THERAPY
     Dosage: UNKNOWN
     Route: 048

REACTIONS (3)
  - GAIT DISTURBANCE [None]
  - HYPOAESTHESIA [None]
  - INJECTION SITE ERYTHEMA [None]
